FAERS Safety Report 7572716-X (Version None)
Quarter: 2011Q2

REPORT INFORMATION
  Report Type: 
  Country: None (occurrence: None)
  Receive Date: 20110620
  Receipt Date: 20110603
  Transmission Date: 20111010
  Serious: Yes (Death, Life-Threatening)
  Sender: FDA-Public Use
  Company Number: 2011MA006747

PATIENT
  Age: 42 Year
  Sex: Male

DRUGS (2)
  1. DEXAMETHASONE [Concomitant]
  2. CLINDAMYCIN PHOSPHATE [Suspect]
     Indication: EPIGLOTTITIS

REACTIONS (4)
  - RESPIRATORY FAILURE [None]
  - PHARYNGEAL OEDEMA [None]
  - ASPHYXIA [None]
  - PULSE ABSENT [None]
